FAERS Safety Report 7305505 (Version 12)
Quarter: 2013Q4

REPORT INFORMATION
  Report Type: Spontaneous
  Country: US (occurrence: US)
  Receive Date: 20100304
  Receipt Date: 20131212
  Transmission Date: 20140711
  Serious: Yes (Other)
  Sender: FDA-Public Use
  Company Number: US-ASTRAZENECA-2009SE33162

PATIENT
  Age: 65 Year
  Sex: Female
  Weight: 98 kg

DRUGS (39)
  1. SYMBICORT [Suspect]
     Indication: ASTHMA
     Dosage: 80/4.5 MCG BID
     Route: 055
     Dates: start: 20091204, end: 20091221
  2. SYMBICORT [Suspect]
     Indication: WHEEZING
     Dosage: 80/4.5 MCG BID
     Route: 055
     Dates: start: 20091204, end: 20091221
  3. SYMBICORT [Suspect]
     Indication: ASTHMA
     Dosage: 160 MCG BID
     Route: 055
     Dates: start: 20091204, end: 20091221
  4. SYMBICORT [Suspect]
     Indication: WHEEZING
     Dosage: 160 MCG BID
     Route: 055
     Dates: start: 20091204, end: 20091221
  5. SYMBICORT [Suspect]
     Indication: ASTHMA
     Dosage: 160 MCG BID
     Route: 055
     Dates: start: 20091211, end: 20091218
  6. SYMBICORT [Suspect]
     Indication: WHEEZING
     Dosage: 160 MCG BID
     Route: 055
     Dates: start: 20091211, end: 20091218
  7. SYMBICORT [Suspect]
     Indication: ASTHMA
     Dosage: 160 MCG BID
     Route: 055
     Dates: start: 20091228
  8. SYMBICORT [Suspect]
     Indication: WHEEZING
     Dosage: 160 MCG BID
     Route: 055
     Dates: start: 20091228
  9. SYMBICORT [Suspect]
     Indication: ASTHMA
     Dosage: 160/4.5 MCG BID
     Route: 055
     Dates: start: 201007
  10. SYMBICORT [Suspect]
     Indication: WHEEZING
     Dosage: 160/4.5 MCG BID
     Route: 055
     Dates: start: 201007
  11. SYMBICORT [Suspect]
     Indication: ASTHMA
     Dosage: AT NIGHT
     Route: 055
  12. SYMBICORT [Suspect]
     Indication: WHEEZING
     Dosage: AT NIGHT
     Route: 055
  13. SYMBICORT [Suspect]
     Indication: ASTHMA
     Dosage: 160/4.5 MG TWICE A DAY
     Route: 055
     Dates: start: 2008
  14. SYMBICORT [Suspect]
     Indication: WHEEZING
     Dosage: 160/4.5 MG TWICE A DAY
     Route: 055
     Dates: start: 2008
  15. NEXIUM [Suspect]
     Indication: GASTROOESOPHAGEAL REFLUX DISEASE
     Route: 048
     Dates: start: 2001
  16. NEXIUM [Suspect]
     Indication: OESOPHAGEAL DISORDER
     Route: 048
     Dates: start: 2001
  17. NEXIUM [Suspect]
     Indication: GASTROOESOPHAGEAL REFLUX DISEASE
     Route: 048
  18. NEXIUM [Suspect]
     Indication: OESOPHAGEAL DISORDER
     Route: 048
  19. LISINOPRIL HCTZ [Suspect]
     Indication: HYPERTENSION
     Dosage: 10/12.5 MG DAILY
     Route: 048
  20. PRILOSEC [Suspect]
     Indication: GASTROOESOPHAGEAL REFLUX DISEASE
     Route: 048
     Dates: start: 2001
  21. PRILOSEC OTC [Suspect]
     Indication: GASTROOESOPHAGEAL REFLUX DISEASE
     Route: 048
  22. PRILOSEC OTC [Suspect]
     Indication: GASTROOESOPHAGEAL REFLUX DISEASE
     Route: 048
     Dates: start: 201311
  23. CRESTOR [Suspect]
     Indication: BLOOD CHOLESTEROL INCREASED
     Route: 048
     Dates: start: 200912
  24. CRESTOR [Suspect]
     Indication: BLOOD CHOLESTEROL INCREASED
     Route: 048
     Dates: start: 201001
  25. CRESTOR [Suspect]
     Indication: BLOOD CHOLESTEROL INCREASED
     Route: 048
     Dates: start: 201002, end: 201305
  26. OMNARIS [Concomitant]
  27. XYZAL [Concomitant]
  28. VENTOLIN [Concomitant]
  29. PREDNISONE [Concomitant]
  30. ATENOLOL [Concomitant]
     Indication: HYPERTENSION
     Route: 048
  31. XANAX [Concomitant]
     Route: 048
  32. XANAX [Concomitant]
     Route: 048
  33. ELAVIL [Concomitant]
     Route: 048
  34. ZYRTEC (GENERIC) [Concomitant]
  35. ACIDOPHILOUS [Concomitant]
     Dosage: BID
  36. ASA [Concomitant]
     Route: 048
  37. METFORMIN [Concomitant]
  38. RANITIDINE [Concomitant]
     Indication: OESOPHAGEAL DISORDER
  39. PRAVASTATIN [Concomitant]

REACTIONS (29)
  - Embolic stroke [Recovered/Resolved]
  - Rotator cuff syndrome [Unknown]
  - Diplopia [Not Recovered/Not Resolved]
  - Dyspnoea [Unknown]
  - Lacrimation increased [Unknown]
  - Anaemia [Unknown]
  - Dysuria [Unknown]
  - Haematuria [Unknown]
  - Eructation [Unknown]
  - Gastrooesophageal reflux disease [Unknown]
  - Blood glucose decreased [Not Recovered/Not Resolved]
  - Chest pain [Unknown]
  - Oesophageal polyp [Unknown]
  - Hypopnoea [Unknown]
  - Visual acuity reduced [Unknown]
  - Migraine [Unknown]
  - Diabetes mellitus [Unknown]
  - Flatulence [Unknown]
  - Malaise [Unknown]
  - Insomnia [Unknown]
  - Oropharyngeal pain [Unknown]
  - Headache [Unknown]
  - Dysphonia [Not Recovered/Not Resolved]
  - Weight decreased [Not Recovered/Not Resolved]
  - Off label use [Unknown]
  - Intentional drug misuse [Unknown]
  - Intentional drug misuse [Unknown]
  - Drug effect incomplete [Unknown]
  - Drug ineffective [Unknown]
